FAERS Safety Report 7939524-9 (Version None)
Quarter: 2011Q4

REPORT INFORMATION
  Report Type: 
  Country: None (occurrence: None)
  Receive Date: 20111125
  Receipt Date: 20111117
  Transmission Date: 20120403
  Serious: Yes (Death, Other)
  Sender: FDA-Public Use
  Company Number: GB-ROCHE-1011838

PATIENT
  Sex: Male
  Weight: 88.6 kg

DRUGS (20)
  1. LUCENTIS [Suspect]
     Indication: AGE-RELATED MACULAR DEGENERATION
     Route: 050
     Dates: start: 20080613
  2. GLIMEPIRIDE [Concomitant]
     Dates: start: 20090817
  3. INFLUENZA VACCINE [Concomitant]
     Dates: start: 20081001
  4. GLYCERYL TRINITRATE [Concomitant]
     Dates: start: 20090131
  5. METFORMIN [Concomitant]
     Dates: start: 20090903
  6. ROSUVASTATIN [Concomitant]
     Dates: start: 20090903
  7. BUMETANIDE [Concomitant]
  8. AVEENO [Concomitant]
     Dates: start: 20080801
  9. ARTHROTEC [Concomitant]
     Dates: start: 20090324
  10. METHOTREXATE [Concomitant]
  11. ASPIRIN [Concomitant]
     Dates: start: 20090707
  12. IMIQUIMOD [Concomitant]
     Dates: start: 20080902
  13. CARVEDILOL [Concomitant]
     Dates: start: 20090903
  14. SPIRONOLACTONE [Concomitant]
     Dates: start: 20090903
  15. RAMIPRIL [Concomitant]
  16. PREGABALIN [Concomitant]
     Dates: start: 20090604
  17. BACTIGRAS [Concomitant]
     Dates: start: 20081014
  18. TERBINAFINE HCL [Concomitant]
  19. TRAMADOL HCL [Concomitant]
  20. FOLIC ACID [Concomitant]
     Dates: start: 20090903

REACTIONS (16)
  - PULMONARY OEDEMA [None]
  - DEATH [None]
  - NEOPLASM MALIGNANT [None]
  - PAIN [None]
  - AORTIC VALVE STENOSIS [None]
  - BACK PAIN [None]
  - ARTERIOSCLEROSIS CORONARY ARTERY [None]
  - NEUROPATHY PERIPHERAL [None]
  - NEUTROPHIL COUNT DECREASED [None]
  - ANGINA PECTORIS [None]
  - HYPOAESTHESIA [None]
  - BLOOD PRESSURE DIASTOLIC DECREASED [None]
  - C-REACTIVE PROTEIN INCREASED [None]
  - CARDIOMYOPATHY [None]
  - PARAESTHESIA [None]
  - BLOOD UREA INCREASED [None]
